FAERS Safety Report 8607383-7 (Version None)
Quarter: 2012Q3

REPORT INFORMATION
  Report Type: 
  Country: None (occurrence: None)
  Receive Date: 20120821
  Receipt Date: 20120815
  Transmission Date: 20120928
  Serious: Yes (Hospitalization)
  Sender: FDA-Public Use
  Company Number: US-AMGEN-USASP2012042374

PATIENT
  Age: 82 Year
  Sex: Male

DRUGS (11)
  1. ASPIRIN [Concomitant]
     Dosage: LOW DOSE
  2. ARANESP [Suspect]
     Indication: ANAEMIA
     Dosage: 200 MUG, Q6WK
  3. TOPROL-XL [Concomitant]
     Dosage: UNK
  4. CARDURA [Concomitant]
     Dosage: UNK
  5. PRILOSEC [Concomitant]
     Dosage: UNK
  6. MEVACOR [Concomitant]
     Dosage: UNK
  7. NEURONTIN [Concomitant]
     Dosage: UNK
  8. MULTI-VITAMINS [Concomitant]
     Dosage: UNK
  9. HYDROCHLOROTHIAZIDE [Concomitant]
     Dosage: UNK
  10. PLAVIX [Concomitant]
     Dosage: UNK
  11. AVAPRO [Concomitant]
     Dosage: UNK

REACTIONS (2)
  - HAEMOGLOBIN DECREASED [None]
  - ANGINA PECTORIS [None]
